FAERS Safety Report 9998881 (Version 2)
Quarter: 2015Q1

REPORT INFORMATION
  Report Type: Report from Study
  Country: DE (occurrence: DE)
  Receive Date: 20140312
  Receipt Date: 20150212
  Transmission Date: 20150721
  Serious: Yes (Hospitalization)
  Sender: FDA-Public Use
  Company Number: DE-ROCHE-1360073

PATIENT
  Age: 74 Year
  Sex: Female

DRUGS (2)
  1. TOCILIZUMAB [Suspect]
     Active Substance: TOCILIZUMAB
     Indication: RHEUMATOID ARTHRITIS
     Route: 065
  2. PROSTAVASIN [Concomitant]
     Indication: PERIPHERAL ARTERIAL OCCLUSIVE DISEASE

REACTIONS (3)
  - Foot deformity [Not Recovered/Not Resolved]
  - Impaired healing [Unknown]
  - Angina pectoris [Recovered/Resolved]

NARRATIVE: CASE EVENT DATE: 20140116
